FAERS Safety Report 10205496 (Version 1)
Quarter: 2014Q2

REPORT INFORMATION
  Report Type: Spontaneous
  Country: US (occurrence: US)
  Receive Date: 20140529
  Receipt Date: 20140529
  Transmission Date: 20141212
  Serious: Yes (Other)
  Sender: FDA-Public Use
  Company Number: US-BRISTOL-MYERS SQUIBB COMPANY-20881132

PATIENT
  Age: 29 Year
  Sex: Male

DRUGS (1)
  1. NULOJIX [Suspect]

REACTIONS (3)
  - Anaphylactoid reaction [Unknown]
  - Headache [Unknown]
  - Throat irritation [Unknown]
